FAERS Safety Report 13641350 (Version 1)
Quarter: 2017Q2

REPORT INFORMATION
  Report Type: Spontaneous
  Country: US (occurrence: US)
  Receive Date: 20170612
  Receipt Date: 20170612
  Transmission Date: 20170830
  Serious: No
  Sender: FDA-Public Use
  Company Number: US-TEVA-776539ACC

PATIENT
  Age: 26 Year
  Sex: Female
  Weight: 50.85 kg

DRUGS (1)
  1. TAKE ACTION [Suspect]
     Active Substance: LEVONORGESTREL
     Indication: POST COITAL CONTRACEPTION
     Dates: start: 20170603, end: 20170603

REACTIONS (4)
  - Product solubility abnormal [Recovered/Resolved]
  - Paraesthesia [Recovered/Resolved]
  - Dysgeusia [Recovered/Resolved]
  - Nausea [Recovered/Resolved]

NARRATIVE: CASE EVENT DATE: 20170603
